FAERS Safety Report 8054387-1 (Version None)
Quarter: 2012Q1

REPORT INFORMATION
  Report Type: 
  Country: None (occurrence: None)
  Receive Date: 20120118
  Receipt Date: 20120112
  Transmission Date: 20120608
  Serious: Yes (Other)
  Sender: FDA-Public Use
  Company Number: CA-AMGEN-CANSP2011054942

PATIENT
  Age: 53 Year
  Sex: Female

DRUGS (4)
  1. METHOTREXATE [Concomitant]
     Indication: PSORIATIC ARTHROPATHY
  2. ENBREL [Suspect]
     Indication: PSORIATIC ARTHROPATHY
     Dosage: 50 MG, QWK
     Dates: start: 20100605
  3. ACTONEL [Concomitant]
     Dosage: UNK, QWK
  4. PREDNISONE [Concomitant]

REACTIONS (3)
  - PSORIATIC ARTHROPATHY [None]
  - NEUROPATHY PERIPHERAL [None]
  - OSTEOPOROTIC FRACTURE [None]
